FAERS Safety Report 23154952 (Version 3)
Quarter: 2023Q4

REPORT INFORMATION
  Report Type: Spontaneous
  Country: US (occurrence: US)
  Receive Date: 20231107
  Receipt Date: 20231115
  Transmission Date: 20240110
  Serious: No
  Sender: FDA-Public Use
  Company Number: US-ABBVIE-5480460

PATIENT
  Sex: Female

DRUGS (1)
  1. LATISSE [Suspect]
     Active Substance: BIMATOPROST
     Indication: Product used for unknown indication
     Dosage: 0.3MG/ML SOLUTION
     Route: 065
     Dates: start: 202310

REACTIONS (1)
  - Dark circles under eyes [Unknown]

NARRATIVE: CASE EVENT DATE: 20230101
